FAERS Safety Report 7126114-3 (Version None)
Quarter: 2010Q4

REPORT INFORMATION
  Report Type: 
  Country: None (occurrence: None)
  Receive Date: 20101129
  Receipt Date: 20101119
  Transmission Date: 20110411
  Serious: Yes (Other)
  Sender: FDA-Public Use
  Company Number: ZA-ROCHE-743115

PATIENT
  Sex: Female

DRUGS (4)
  1. ISOTRETINOIN [Suspect]
     Indication: ACNE
     Route: 065
     Dates: start: 20070401
  2. ISOTRETINOIN [Suspect]
     Route: 065
     Dates: start: 20080101
  3. ISOTRETINOIN [Suspect]
     Route: 065
     Dates: start: 20090801
  4. ISOTRETINOIN [Suspect]
     Route: 065
     Dates: start: 20100501

REACTIONS (4)
  - BLOOD GLUCOSE INCREASED [None]
  - DEPRESSION [None]
  - MOOD ALTERED [None]
  - SUICIDAL IDEATION [None]
